FAERS Safety Report 5397682-7 (Version None)
Quarter: 2007Q3

REPORT INFORMATION
  Report Type: 
  Country: None (occurrence: None)
  Receive Date: 20070726
  Receipt Date: 20070720
  Transmission Date: 20080115
  Serious: Yes (Hospitalization)
  Sender: FDA-Public Use
  Company Number: US-SOLVAY-00207001138

PATIENT
  Age: 74 Year
  Sex: Male
  Weight: 90.5 kg

DRUGS (7)
  1. NEXIUM [Concomitant]
     Indication: GASTROOESOPHAGEAL REFLUX DISEASE
     Dosage: DAILY DOSE: 40 MILLIGRAM(S)
     Route: 048
  2. ANDROGEL [Suspect]
     Indication: SENSORY LOSS
     Dosage: DAILY DOSE: 5 GRAM(S)
     Route: 062
     Dates: start: 20060801, end: 20070312
  3. ANDROGEL [Suspect]
     Dosage: DAILY DOSE: 2.5 GRAM(S) VIA ANDROGEL PUMP
     Route: 062
     Dates: start: 20070313, end: 20070315
  4. ANDROGEL [Suspect]
     Dosage: DAILY DOSE: 3.75 GRAM(S) VIA ANDROGEL PUMP
     Route: 062
     Dates: start: 20070316, end: 20070101
  5. ANDROGEL [Suspect]
     Dosage: DAILY DOSE: 5 GRAM(S)
     Route: 062
     Dates: start: 20070101
  6. ALPRAZOLAM [Concomitant]
     Indication: ANXIETY
     Dosage: DAILY DOSE: .5 MILLIGRAM(S)
     Route: 048
  7. DIOVAN HCT [Concomitant]
     Indication: HYPERTENSION
     Dosage: DAILY DOSE: 1 DOSAGE FORM; 80/12.5 MG
     Route: 048

REACTIONS (4)
  - BRONCHIAL DISORDER [None]
  - DRUG INEFFECTIVE [None]
  - DYSPNOEA [None]
  - OEDEMA PERIPHERAL [None]
